FAERS Safety Report 4469419-7 (Version None)
Quarter: 2004Q4

REPORT INFORMATION
  Report Type: 
  Country: None (occurrence: None)
  Receive Date: 20041008
  Receipt Date: 20040722
  Transmission Date: 20050328
  Serious: No
  Sender: FDA-Public Use
  Company Number: US-BRISTOL-MYERS SQUIBB COMPANY-12649026

PATIENT
  Age: 76 Year
  Sex: Female
  Weight: 70 kg

DRUGS (6)
  1. AVAPRO [Suspect]
     Indication: HYPERTENSION
     Dosage: 1 MONTH AGO HER PHYSICIAN GAVE HER SAMPLES OF AVAPRO 150MG.
     Route: 048
     Dates: start: 20040101
  2. COREG [Concomitant]
  3. DIGITEK [Concomitant]
  4. POTASSIUM [Concomitant]
  5. LASIX [Concomitant]
  6. TRIAMTERENE [Concomitant]

REACTIONS (1)
  - DIZZINESS [None]
